FAERS Safety Report 10871983 (Version 1)
Quarter: 2015Q1

REPORT INFORMATION
  Report Type: Spontaneous
  Country: SE (occurrence: SE)
  Receive Date: 20150226
  Receipt Date: 20150226
  Transmission Date: 20150721
  Serious: Yes (Other)
  Sender: FDA-Public Use
  Company Number: SE-WATSON-2015-03596

PATIENT
  Sex: Female

DRUGS (2)
  1. BETOLVIDON [Suspect]
     Active Substance: CYANOCOBALAMIN
     Indication: HYPOVITAMINOSIS
     Dosage: UNK
     Route: 048
  2. BETOLVEX [Suspect]
     Active Substance: CYANOCOBALAMIN
     Indication: HYPOVITAMINOSIS
     Dosage: UNK
     Route: 048

REACTIONS (2)
  - Alopecia [Recovered/Resolved]
  - Product substitution issue [Recovered/Resolved]
